FAERS Safety Report 25610646 (Version 1)
Quarter: 2025Q3

REPORT INFORMATION
  Report Type: Spontaneous
  Country: US (occurrence: US)
  Receive Date: 20250728
  Receipt Date: 20250728
  Transmission Date: 20251021
  Serious: Yes (Life-Threatening, Hospitalization, Other)
  Sender: AUROBINDO
  Company Number: US-MLMSERVICE-20250710-PI575810-00271-1

PATIENT
  Age: 74 Year
  Sex: Male

DRUGS (1)
  1. PREDNISONE [Suspect]
     Active Substance: PREDNISONE
     Indication: Gout
     Route: 065

REACTIONS (4)
  - Renal failure [Recovering/Resolving]
  - Atypical mycobacterial infection [Recovering/Resolving]
  - Respiratory failure [Recovering/Resolving]
  - Sepsis [Recovering/Resolving]
